FAERS Safety Report 11055919 (Version 1)
Quarter: 2015Q2

REPORT INFORMATION
  Report Type: Other
  Country: GB (occurrence: GB)
  Receive Date: 20150422
  Receipt Date: 20150422
  Transmission Date: 20150821
  Serious: Yes (Other)
  Sender: FDA-Public Use
  Company Number: GB-PERRIGO-15GB004121

PATIENT
  Age: 67 Year
  Sex: Female
  Weight: 83.46 kg

DRUGS (2)
  1. MAX STRENGTH SINUS RELIEF CAPSULES 12063/0067 [Suspect]
     Active Substance: ACETAMINOPHEN\CAFFEINE\PHENYLEPHRINE HYDROCHLORIDE
     Indication: PRODUCT USED FOR UNKNOWN INDICATION
     Dosage: 2 DF Q4H
     Route: 048
     Dates: start: 20150212, end: 20150212
  2. STATIN                             /00036501/ [Concomitant]
     Active Substance: NYSTATIN
     Indication: PRODUCT USED FOR UNKNOWN INDICATION
     Dosage: 20 MG, QD
     Route: 065

REACTIONS (7)
  - Confusional state [Recovered/Resolved with Sequelae]
  - Thinking abnormal [Recovered/Resolved with Sequelae]
  - Vomiting [Recovered/Resolved with Sequelae]
  - Nausea [Recovered/Resolved with Sequelae]
  - Headache [Recovered/Resolved with Sequelae]
  - Palpitations [Recovered/Resolved with Sequelae]
  - Insomnia [Recovered/Resolved with Sequelae]

NARRATIVE: CASE EVENT DATE: 20150328
